FAERS Safety Report 5073302-6 (Version None)
Quarter: 2006Q3

REPORT INFORMATION
  Report Type: 
  Country: None (occurrence: None)
  Receive Date: 20060706
  Receipt Date: 20060323
  Transmission Date: 20061208
  Serious: No
  Sender: FDA-Public Use
  Company Number: 200611780BWH

PATIENT
  Age: 59 Year
  Sex: Male

DRUGS (8)
  1. LEVITRA [Suspect]
     Indication: ERECTILE DYSFUNCTION
     Dosage: SEE IMAGE
     Route: 048
  2. LYRICA [Concomitant]
  3. SINEMET [Concomitant]
  4. AMANTADINE HCL [Concomitant]
  5. LAMICTAL [Concomitant]
  6. PROVIGIL [Concomitant]
  7. CRESTOR [Concomitant]
  8. KLONOPIN [Concomitant]

REACTIONS (3)
  - DYSPNOEA [None]
  - HEADACHE [None]
  - RHINORRHOEA [None]
